FAERS Safety Report 22380510 (Version 2)
Quarter: 2023Q2

REPORT INFORMATION
  Report Type: Report from Study
  Country: PA (occurrence: PA)
  Receive Date: 20230529
  Receipt Date: 20230629
  Transmission Date: 20230721
  Serious: Yes (Death, Other)
  Sender: FDA-Public Use
  Company Number: PA-002147023-NVSC2023PA121571

PATIENT
  Age: 70 Year
  Sex: Female

DRUGS (6)
  1. KISQALI [Suspect]
     Active Substance: RIBOCICLIB
     Indication: Breast cancer
     Dosage: 600 MG (3 TABLETS, 1 IN THE MORNING, 1 IN THE AFTERNOON , AND 1 AT NIGHT)
     Route: 048
     Dates: start: 202210
  2. KISQALI [Suspect]
     Active Substance: RIBOCICLIB
     Indication: Metastases to pleura
     Dosage: 600 MG, QD (3 TABLETS)
     Route: 048
  3. KISQALI [Suspect]
     Active Substance: RIBOCICLIB
     Dosage: 400 MG, BID (2 TABLETS, 1 IN THE MORNING AND 1 IN THE AFTERNOON)
     Route: 048
  4. KISQALI [Suspect]
     Active Substance: RIBOCICLIB
     Dosage: 200 MG, QD (1 TABLET)
     Route: 048
     Dates: end: 20230516
  5. ANASTROZOLE [Suspect]
     Active Substance: ANASTROZOLE
     Indication: Breast cancer
     Dosage: UNK
     Route: 065
     Dates: start: 202210
  6. ANASTROZOLE [Suspect]
     Active Substance: ANASTROZOLE
     Indication: Metastases to pleura

REACTIONS (7)
  - Death [Fatal]
  - Tumour marker increased [Unknown]
  - Abdominal discomfort [Not Recovered/Not Resolved]
  - Nausea [Unknown]
  - Asthenia [Unknown]
  - Decreased appetite [Unknown]
  - Inappropriate schedule of product administration [Unknown]

NARRATIVE: CASE EVENT DATE: 20221001
